FAERS Safety Report 6199798-4 (Version None)
Quarter: 2009Q2

REPORT INFORMATION
  Report Type: 
  Country: None (occurrence: None)
  Receive Date: 20090520
  Receipt Date: 20090520
  Transmission Date: 20091009
  Serious: No
  Sender: FDA-Public Use
  Company Number: None

PATIENT
  Age: 56 Year
  Sex: Male

DRUGS (1)
  1. OCTREOTIDE ACETATE [Suspect]
     Indication: GASTROINTESTINAL HAEMORRHAGE
     Dosage: DRIP-UNCLEAR OF RATE
     Dates: start: 20080914, end: 20080914

REACTIONS (4)
  - BRADYCARDIA [None]
  - HYPERTENSION [None]
  - HYPOXIA [None]
  - NODAL RHYTHM [None]
